FAERS Safety Report 5935341-X (Version None)
Quarter: 2008Q4

REPORT INFORMATION
  Report Type: 
  Country: None (occurrence: None)
  Receive Date: 20081029
  Receipt Date: 20081029
  Transmission Date: 20090506
  Serious: Yes (Hospitalization)
  Sender: FDA-Public Use
  Company Number: None

PATIENT
  Sex: Female
  Weight: 62.2 kg

DRUGS (2)
  1. CARBOPLATIN [Suspect]
     Dosage: 1090 MG
  2. PACLITAXEL [Suspect]
     Dosage: 320 MG

REACTIONS (5)
  - COUGH [None]
  - DRUG EFFECT DECREASED [None]
  - DYSPNOEA [None]
  - TOBACCO USER [None]
  - WHEEZING [None]
